FAERS Safety Report 21480662 (Version 1)
Quarter: 2022Q4

REPORT INFORMATION
  Report Type: Report from Study
  Country: US (occurrence: US)
  Receive Date: 20221019
  Receipt Date: 20221019
  Transmission Date: 20230113
  Serious: Yes (Other)
  Sender: FDA-Public Use
  Company Number: US-ABBVIE-22K-163-4493301-00

PATIENT
  Age: 61 Year
  Sex: Female
  Weight: 63.5 kg

DRUGS (8)
  1. HUMIRA [Suspect]
     Active Substance: ADALIMUMAB
     Indication: Rheumatoid arthritis
     Dosage: STRENGTH:40MG
     Route: 058
     Dates: start: 20221011
  2. HUMIRA [Suspect]
     Active Substance: ADALIMUMAB
     Dosage: STRENGTH:40MG
     Route: 058
     Dates: start: 20220705, end: 20220809
  3. IBUPROFEN [Concomitant]
     Active Substance: IBUPROFEN
     Indication: Pain
     Dosage: AS NEEDED
  4. FOLIC ACID [Concomitant]
     Active Substance: FOLIC ACID
     Indication: Rheumatoid arthritis
  5. METHOTREXATE [Concomitant]
     Active Substance: METHOTREXATE
     Indication: Rheumatoid arthritis
  6. MODERNA COVID-19 VACCINE [Concomitant]
     Active Substance: ELASOMERAN
     Indication: COVID-19 immunisation
     Dosage: 2ND DOSE
     Route: 030
     Dates: start: 20210602, end: 20210602
  7. MODERNA COVID-19 VACCINE [Concomitant]
     Active Substance: ELASOMERAN
     Indication: COVID-19 immunisation
     Dosage: BOOSTER
     Route: 030
     Dates: start: 20220422, end: 20220422
  8. MODERNA COVID-19 VACCINE [Concomitant]
     Active Substance: ELASOMERAN
     Indication: COVID-19 immunisation
     Dosage: 1ST DOSE
     Route: 030
     Dates: start: 20210505, end: 20210505

REACTIONS (3)
  - Knee operation [Recovering/Resolving]
  - Meniscus injury [Recovered/Resolved]
  - Skin laceration [Recovered/Resolved]

NARRATIVE: CASE EVENT DATE: 20220722
